FAERS Safety Report 15526379 (Version 2)
Quarter: 2018Q4

REPORT INFORMATION
  Report Type: Other
  Country: PT (occurrence: PT)
  Receive Date: 20181018
  Receipt Date: 20181121
  Transmission Date: 20190205
  Serious: Yes (Disabling)
  Sender: FDA-Public Use
  Company Number: PT-COLLEGIUM PHARMACEUTICAL, INC.-PT-2018COL014323

PATIENT

DRUGS (12)
  1. TAPENTADOL EXTENDED RELEASE [Suspect]
     Active Substance: TAPENTADOL
     Indication: ARTHRALGIA
     Dosage: 50 MG, QD
     Route: 048
     Dates: start: 2017
  2. DUSPATAL                           /00139402/ [Concomitant]
     Indication: IRRITABLE BOWEL SYNDROME
     Dosage: UNK
  3. ZARELIX [Suspect]
     Active Substance: VENLAFAXINE HYDROCHLORIDE
     Indication: DEPRESSION
     Dosage: 37.5 MG, QD
     Route: 048
     Dates: start: 201803
  4. NEBILET HCT [Concomitant]
     Indication: HYPERTENSION
     Dosage: UNK
     Dates: start: 2017
  5. CALCITAB D [Concomitant]
     Indication: CALCIUM DEFICIENCY
     Dosage: UNK
     Dates: start: 201807
  6. TAPENTADOL EXTENDED RELEASE [Suspect]
     Active Substance: TAPENTADOL
     Dosage: 150 MG, QD
     Route: 048
     Dates: start: 2017, end: 2017
  7. STRUCTUM                           /00495202/ [Concomitant]
     Indication: ARTHRALGIA
     Dosage: UNK
     Dates: start: 201803, end: 201809
  8. UNISEDIL [Concomitant]
     Active Substance: DIAZEPAM
     Indication: DEPRESSION
     Dosage: UNK
  9. SUCRALFATO [Concomitant]
     Active Substance: SUCRALFATE
     Indication: GASTROOESOPHAGEAL REFLUX DISEASE
     Dosage: UNK
  10. MAGNORAL [Concomitant]
     Indication: MUSCLE SPASMS
     Dosage: UNK
     Dates: start: 201807
  11. ZARELIX [Suspect]
     Active Substance: VENLAFAXINE HYDROCHLORIDE
     Dosage: 75 MG, QD
     Route: 048
     Dates: start: 2015, end: 201803
  12. GLUCOSAMINA LABESFAL [Concomitant]
     Indication: ARTHRALGIA
     Dosage: UNK
     Dates: start: 201706

REACTIONS (6)
  - Decreased appetite [Recovered/Resolved]
  - Burning sensation [Not Recovered/Not Resolved]
  - Insomnia [Unknown]
  - Hyperhidrosis [Not Recovered/Not Resolved]
  - Dizziness [Recovered/Resolved]
  - Nightmare [Recovered/Resolved]

NARRATIVE: CASE EVENT DATE: 2017
